FAERS Safety Report 4949041-6 (Version None)
Quarter: 2006Q1

REPORT INFORMATION
  Report Type: 
  Country: None (occurrence: None)
  Receive Date: 20060321
  Receipt Date: 20051115
  Transmission Date: 20060701
  Serious: Yes (Other)
  Sender: FDA-Public Use
  Company Number: GB-GLAXOSMITHKLINE-B0400701A

PATIENT
  Sex: Male

DRUGS (3)
  1. SEROXAT [Suspect]
     Indication: DEPRESSION
     Route: 065
  2. AMITRIPTYLINE HCL [Concomitant]
     Indication: DEPRESSION
  3. UNSPECIFIED DRUGS [Concomitant]
     Indication: DEPRESSION

REACTIONS (6)
  - AGGRESSION [None]
  - COMPLETED SUICIDE [None]
  - DRUG INEFFECTIVE [None]
  - DRUG WITHDRAWAL SYNDROME [None]
  - OVERDOSE [None]
  - SURGERY [None]
